FAERS Safety Report 10199658 (Version 1)
Quarter: 2014Q2

REPORT INFORMATION
  Report Type: Spontaneous
  Country: IT (occurrence: IT)
  Receive Date: 20140527
  Receipt Date: 20140527
  Transmission Date: 20141212
  Serious: Yes (Other)
  Sender: FDA-Public Use
  Company Number: IT-MYLANLABS-2014S1011669

PATIENT
  Age: 16 Year
  Sex: Female

DRUGS (2)
  1. METHOTREXATE [Suspect]
     Indication: OSTEOSARCOMA
     Dosage: 12 G/M2 IN 4 HOURS
     Route: 050
  2. METHOTREXATE [Suspect]
     Indication: OFF LABEL USE
     Dosage: 12 G/M2 IN 4 HOURS
     Route: 050

REACTIONS (3)
  - Hypersensitivity [Recovering/Resolving]
  - Organ failure [Recovering/Resolving]
  - Transaminases increased [Not Recovered/Not Resolved]
